FAERS Safety Report 10194096 (Version 1)
Quarter: 2014Q2

REPORT INFORMATION
  Report Type: Spontaneous
  Country: US (occurrence: US)
  Receive Date: 20140524
  Receipt Date: 20140524
  Transmission Date: 20141212
  Serious: No
  Sender: FDA-Public Use
  Company Number: US-SANOFI-AVENTIS-2013SA056292

PATIENT
  Age: 72 Year
  Sex: Female

DRUGS (3)
  1. LANTUS SOLOSTAR [Suspect]
     Indication: TYPE 2 DIABETES MELLITUS
     Dosage: DOSE:50 UNIT(S)
     Route: 051
  2. SOLOSTAR [Suspect]
  3. LIPITOR [Suspect]

REACTIONS (6)
  - Influenza [Unknown]
  - Tonsillitis [Unknown]
  - Constipation [Unknown]
  - Arthropathy [Unknown]
  - Muscular weakness [Unknown]
  - Abasia [Unknown]
